FAERS Safety Report 8426703-X (Version None)
Quarter: 2012Q2

REPORT INFORMATION
  Report Type: 
  Country: None (occurrence: None)
  Receive Date: 20120323
  Receipt Date: 20110719
  Transmission Date: 20120825
  Serious: Yes (Death, Hospitalization, Disabling, Other)
  Sender: FDA-Public Use
  Company Number: 163-21880-11043713

PATIENT
  Sex: Male

DRUGS (3)
  1. REVLIMID [Suspect]
     Indication: MYELODYSPLASTIC SYNDROME
     Dosage: 10 MG, 1 IN 1 D, PO
     Route: 048
     Dates: start: 20110101
  2. ANTIBIOTICS (ANTIBIOTICS) [Concomitant]
  3. PLATELETS (PLATELETS) [Concomitant]

REACTIONS (2)
  - PANCYTOPENIA [None]
  - PNEUMONIA [None]
